FAERS Safety Report 10573580 (Version 1)
Quarter: 2014Q4

REPORT INFORMATION
  Report Type: Spontaneous
  Country: FR (occurrence: FR)
  Receive Date: 20141110
  Receipt Date: 20141110
  Transmission Date: 20150529
  Serious: Yes (Hospitalization)
  Sender: FDA-Public Use
  Company Number: FR-ASPEN PHARMA TRADING LIMITED US-AG-2014-007032

PATIENT
  Age: 75 Year
  Sex: Female

DRUGS (3)
  1. ENDOXAN [Suspect]
     Active Substance: CYCLOPHOSPHAMIDE
     Indication: DEEP VEIN THROMBOSIS
     Route: 065
     Dates: start: 20140625
  2. CALCIPARINE [Suspect]
     Active Substance: HEPARIN CALCIUM
     Indication: DEEP VEIN THROMBOSIS
     Route: 065
     Dates: start: 20140725
  3. ARIXTRA [Suspect]
     Active Substance: FONDAPARINUX SODIUM
     Indication: DEEP VEIN THROMBOSIS
     Dosage: 7.5MG/0.6 ML
     Route: 058
     Dates: start: 20140802, end: 20140807

REACTIONS (2)
  - Cerebral haemorrhage [Recovering/Resolving]
  - Renal impairment [Recovering/Resolving]

NARRATIVE: CASE EVENT DATE: 20140807
